FAERS Safety Report 5382202-3 (Version None)
Quarter: 2007Q3

REPORT INFORMATION
  Report Type: 
  Country: None (occurrence: None)
  Receive Date: 20070709
  Receipt Date: 20070627
  Transmission Date: 20080115
  Serious: Yes (Other)
  Sender: FDA-Public Use
  Company Number: US-PFIZER INC-2007053581

PATIENT
  Sex: Female
  Weight: 52.2 kg

DRUGS (6)
  1. CHANTIX [Suspect]
     Indication: EX-SMOKER
  2. CENTRUM [Concomitant]
  3. VITAMIN CAP [Concomitant]
  4. CALCIUM CHLORIDE [Concomitant]
  5. PREDNISOLONE [Concomitant]
  6. ESTROVEN [Concomitant]

REACTIONS (4)
  - PERIORBITAL OEDEMA [None]
  - RASH [None]
  - RASH MACULAR [None]
  - SKIN EXFOLIATION [None]
